FAERS Safety Report 21449522 (Version 1)
Quarter: 2022Q4

REPORT INFORMATION
  Report Type: Report from Study
  Country: US (occurrence: US)
  Receive Date: 20221013
  Receipt Date: 20221013
  Transmission Date: 20230112
  Serious: No
  Sender: FDA-Public Use
  Company Number: US-ABBVIE-4141709

PATIENT
  Sex: Female

DRUGS (4)
  1. HUMIRA [Suspect]
     Active Substance: ADALIMUMAB
     Indication: Uveitis
     Route: 058
  2. Pfizer/BioNTech [Concomitant]
     Indication: COVID-19 immunisation
     Dosage: FIRST DOSE (ONE IN ONCE)
     Route: 030
     Dates: start: 20210401, end: 20210401
  3. Pfizer/BioNTech [Concomitant]
     Indication: COVID-19 immunisation
     Dosage: SECOND DOSE (ONE IN ONCE)
     Route: 030
     Dates: start: 20210601, end: 20210601
  4. Pfizer/BioNTech [Concomitant]
     Indication: COVID-19 immunisation
     Dosage: THIRD DOSE/ BOOSTER (ONE IN ONCE)
     Route: 030
     Dates: start: 20220601, end: 20220601

REACTIONS (1)
  - Throat irritation [Recovering/Resolving]
